FAERS Safety Report 7575760-1 (Version None)
Quarter: 2011Q2

REPORT INFORMATION
  Report Type: 
  Country: None (occurrence: None)
  Receive Date: 20110628
  Receipt Date: 20110620
  Transmission Date: 20111010
  Serious: No
  Sender: FDA-Public Use
  Company Number: US-BIOGENIDEC-2011BI021759

PATIENT
  Sex: Male

DRUGS (3)
  1. TYSABRI [Suspect]
     Indication: CROHN'S DISEASE
     Route: 042
  2. STUDY MEDICATION (NOS) [Concomitant]
     Indication: ANORECTAL DISORDER
     Dates: start: 20040101
  3. MEDICATION (NOS) [Concomitant]
     Indication: FISTULA

REACTIONS (1)
  - ARTHRITIS [None]
